FAERS Safety Report 8801609 (Version 1)
Quarter: 2012Q4

REPORT INFORMATION
  Report Type: 
  Country: FR (occurrence: FR)
  Receive Date: 20120921
  Receipt Date: 20120921
  Transmission Date: 20130627
  Serious: Yes (Hospitalization)
  Sender: FDA-Public Use
  Company Number: FR-PFIZER INC-2012232081

PATIENT
  Age: 55 Year
  Sex: Male

DRUGS (1)
  1. EUPANTOL [Suspect]
     Dosage: gradual dose with stages of 1 mg every 30 minutes up to 38 mg
     Route: 048
     Dates: start: 20120706, end: 20120708

REACTIONS (2)
  - Dyspnoea [Recovered/Resolved]
  - Urticaria [Recovered/Resolved]
